FAERS Safety Report 9606189 (Version 1)
Quarter: 2013Q4

REPORT INFORMATION
  Report Type: Spontaneous
  Country: US (occurrence: US)
  Receive Date: 20131008
  Receipt Date: 20131008
  Transmission Date: 20140711
  Serious: No
  Sender: FDA-Public Use
  Company Number: US-AMGEN-USASP2013044792

PATIENT
  Age: 80 Year
  Sex: Female

DRUGS (5)
  1. PROLIA [Suspect]
     Indication: OSTEOPOROSIS POSTMENOPAUSAL
     Dosage: UNK
     Dates: start: 201301
  2. PROLIA [Suspect]
  3. CALCIUM [Concomitant]
     Dosage: 800 UNK, QD
  4. OMEPRAZOLE [Concomitant]
  5. THYROID THERAPY [Concomitant]

REACTIONS (6)
  - Hypoaesthesia [Unknown]
  - Paraesthesia oral [Unknown]
  - Hypoaesthesia oral [Unknown]
  - Malaise [Unknown]
  - Dental discomfort [Unknown]
  - Investigation abnormal [Recovered/Resolved]
